FAERS Safety Report 6534991-X (Version None)
Quarter: 2010Q1

REPORT INFORMATION
  Report Type: 
  Country: None (occurrence: None)
  Receive Date: 20100112
  Receipt Date: 20100105
  Transmission Date: 20100710
  Serious: Yes (Life-Threatening, Hospitalization)
  Sender: FDA-Public Use
  Company Number: FR-MERCK-1001FRA00006

PATIENT
  Age: 70 Year
  Sex: Male

DRUGS (8)
  1. EMEND [Suspect]
     Indication: PREMEDICATION
     Route: 048
     Dates: start: 20090525, end: 20090525
  2. EMEND [Suspect]
     Route: 048
     Dates: start: 20090526, end: 20090527
  3. FLUOROURACIL [Suspect]
     Indication: OESOPHAGEAL CARCINOMA
     Route: 042
     Dates: start: 20090525, end: 20090529
  4. CISPLATIN [Suspect]
     Indication: OESOPHAGEAL CARCINOMA
     Route: 042
     Dates: start: 20090525, end: 20090525
  5. METHYLPREDNISOLONE [Suspect]
     Indication: PREMEDICATION
     Route: 042
     Dates: start: 20090525, end: 20090529
  6. ONDANSETRON HYDROCHLORIDE [Suspect]
     Indication: PREMEDICATION
     Route: 042
     Dates: start: 20090525, end: 20090525
  7. KETOPROFEN [Suspect]
     Indication: PERIARTHRITIS
     Route: 065
     Dates: start: 20090526, end: 20090527
  8. NITRENDIPINE [Concomitant]
     Indication: HYPERTENSION
     Route: 065

REACTIONS (5)
  - ACUTE PULMONARY OEDEMA [None]
  - ANURIA [None]
  - CARDIAC FAILURE [None]
  - OEDEMA PERIPHERAL [None]
  - RENAL FAILURE ACUTE [None]
